FAERS Safety Report 5099862-7 (Version None)
Quarter: 2006Q3

REPORT INFORMATION
  Report Type: 
  Country: None (occurrence: None)
  Receive Date: 20060906
  Receipt Date: 20060822
  Transmission Date: 20061208
  Serious: Yes (Hospitalization)
  Sender: FDA-Public Use
  Company Number: 2006102376

PATIENT
  Age: 65 Year
  Sex: Female

DRUGS (5)
  1. SUTENT [Suspect]
     Indication: METASTATIC RENAL CELL CARCINOMA
     Dosage: SEE IMAGE
     Route: 048
     Dates: start: 20051006
  2. SUTENT [Suspect]
     Indication: METASTATIC RENAL CELL CARCINOMA
     Dosage: SEE IMAGE
     Route: 048
     Dates: start: 20060517
  3. OMEPRAZOLE [Concomitant]
  4. MICARDIS HCT [Concomitant]
  5. IBUPROFEN [Concomitant]

REACTIONS (3)
  - FALL [None]
  - PERIORBITAL HAEMATOMA [None]
  - SYNCOPE [None]
